FAERS Safety Report 24734705 (Version 1)
Quarter: 2024Q4

REPORT INFORMATION
  Report Type: Other
  Country: IN (occurrence: IN)
  Receive Date: 20241214
  Receipt Date: 20241214
  Transmission Date: 20250115
  Serious: Yes (Life-Threatening, Disabling)
  Sender: B BRAUN
  Company Number: IN-B.Braun Medical Inc.-2167083

PATIENT
  Age: 71 Year
  Sex: Male

DRUGS (4)
  1. MEROPENEM [Suspect]
     Active Substance: MEROPENEM
     Indication: Klebsiella infection
  2. PIPERACILLIN SODIUM\TAZOBACTAM SODIUM [Suspect]
     Active Substance: PIPERACILLIN SODIUM\TAZOBACTAM SODIUM
  3. IMIPENEM [Suspect]
     Active Substance: IMIPENEM
  4. AMIKACIN [Suspect]
     Active Substance: AMIKACIN

REACTIONS (1)
  - Drug ineffective [Unknown]
